FAERS Safety Report 24864066 (Version 1)
Quarter: 2025Q1

REPORT INFORMATION
  Report Type: Spontaneous
  Country: US (occurrence: US)
  Receive Date: 20250120
  Receipt Date: 20250120
  Transmission Date: 20250408
  Serious: No
  Sender: AMGEN
  Company Number: US-AMGEN-USASP2025008861

PATIENT
  Age: 60 Year
  Sex: Female

DRUGS (5)
  1. ADALIMUMAB [Suspect]
     Active Substance: ADALIMUMAB
     Indication: Lichen planus
     Route: 065
  2. NALTREXONE [Concomitant]
     Active Substance: NALTREXONE
     Indication: Lichen planus
     Dosage: 3 MILLIGRAM, QD
     Route: 048
  3. SECUKINUMAB [Concomitant]
     Active Substance: SECUKINUMAB
     Indication: Lichen planus
     Route: 065
  4. TRIAMCINOLONE [Concomitant]
     Active Substance: TRIAMCINOLONE
     Indication: Lichen planus
     Route: 065
  5. Calcipotriene/betamethasone dipropionate [Concomitant]
     Route: 065

REACTIONS (2)
  - Off label use [Unknown]
  - Lichen planus [Unknown]
